FAERS Safety Report 6715347-3 (Version None)
Quarter: 2010Q2

REPORT INFORMATION
  Report Type: 
  Country: None (occurrence: None)
  Receive Date: 20100507
  Receipt Date: 20100427
  Transmission Date: 20101027
  Serious: Yes (Other)
  Sender: FDA-Public Use
  Company Number: JP-BAYER-200915005BYL

PATIENT
  Age: 76 Year
  Sex: Male
  Weight: 56 kg

DRUGS (9)
  1. NEXAVAR [Suspect]
     Indication: HEPATIC NEOPLASM MALIGNANT
     Dosage: UNIT DOSE: 200 MG
     Route: 048
     Dates: start: 20091124, end: 20091204
  2. NEXAVAR [Suspect]
     Dosage: UNIT DOSE: 200 MG
     Route: 048
     Dates: start: 20091205, end: 20091209
  3. NEXAVAR [Suspect]
     Dosage: UNIT DOSE: 200 MG
     Route: 048
     Dates: start: 20091218
  4. URSO 250 [Concomitant]
     Indication: HEPATITIS
     Dosage: UNIT DOSE: 100 MG
     Route: 048
  5. LUPRAC [Concomitant]
     Indication: OEDEMA
     Dosage: UNIT DOSE: 8 MG
     Route: 048
  6. CANDESARTAN CILEXETIL [Concomitant]
     Indication: HYPERTENSION
     Dosage: UNIT DOSE: 8 MG
     Route: 048
  7. AMLODIN OD [Concomitant]
     Indication: HYPERTENSION
     Dosage: UNIT DOSE: 5 MG
     Route: 048
  8. PARIET [Concomitant]
     Indication: GASTRIC ULCER
     Dosage: UNIT DOSE: 10 MG
     Route: 048
  9. LIVACT [Concomitant]
     Indication: HYPOALBUMINAEMIA
     Route: 048

REACTIONS (1)
  - PYREXIA [None]
